FAERS Safety Report 23519039 (Version 3)
Quarter: 2024Q1

REPORT INFORMATION
  Report Type: Spontaneous
  Country: US (occurrence: US)
  Receive Date: 20240213
  Receipt Date: 20240228
  Transmission Date: 20240410
  Serious: No
  Sender: FDA-Public Use
  Company Number: US-BAUSCH-BL-2024-002011

PATIENT
  Sex: Female

DRUGS (1)
  1. TRETINOIN [Suspect]
     Active Substance: TRETINOIN
     Indication: Product used for unknown indication
     Dosage: EVERY NIGHT, AT BEDTIME, AS TOLERATED,   ?USING FOR FOUR MONTHS SINCE STARTED USING
     Route: 065

REACTIONS (2)
  - Application site irritation [Unknown]
  - Drug ineffective [Unknown]
